FAERS Safety Report 9838169 (Version 1)
Quarter: 2014Q1

REPORT INFORMATION
  Report Type: Spontaneous
  Country: JP (occurrence: JP)
  Receive Date: 20140123
  Receipt Date: 20140123
  Transmission Date: 20141002
  Serious: Yes (Other)
  Sender: FDA-Public Use
  Company Number: JP-SA-2014SA006834

PATIENT
  Age: 48 Year
  Sex: Female

DRUGS (2)
  1. FUROSEMIDE [Suspect]
     Indication: POLYURIA
     Route: 048
  2. DIURETICS [Concomitant]
     Indication: OEDEMA
     Route: 048

REACTIONS (6)
  - Pseudo-Bartter syndrome [Unknown]
  - Blood potassium decreased [Unknown]
  - Hypotension [Unknown]
  - Blood chloride decreased [Unknown]
  - Blood calcium decreased [Unknown]
  - Nephrolithiasis [Unknown]
